FAERS Safety Report 12877045 (Version 1)
Quarter: 2016Q4

REPORT INFORMATION
  Report Type: Spontaneous
  Country: US (occurrence: US)
  Receive Date: 20161022
  Receipt Date: 20161022
  Transmission Date: 20170207
  Serious: Yes (Hospitalization, Other)
  Sender: FDA-Public Use
  Company Number: None

PATIENT
  Age: 63 Year
  Sex: Female
  Weight: 91.8 kg

DRUGS (1)
  1. VERSED [Suspect]
     Active Substance: MIDAZOLAM HYDROCHLORIDE
     Indication: LITHOTRIPSY
     Dosage: INTRAVENOUS (NOT OTHERWISE SPECIFIED)
     Route: 042
     Dates: start: 20161017, end: 20161017

REACTIONS (7)
  - Delayed recovery from anaesthesia [None]
  - Vision blurred [None]
  - Vertigo [None]
  - Vomiting [None]
  - Dizziness [None]
  - Nausea [None]
  - Mydriasis [None]

NARRATIVE: CASE EVENT DATE: 20161017
